FAERS Safety Report 25472609 (Version 1)
Quarter: 2025Q2

REPORT INFORMATION
  Report Type: Spontaneous
  Country: US (occurrence: US)
  Receive Date: 20250624
  Receipt Date: 20250624
  Transmission Date: 20250717
  Serious: No
  Sender: EISAI
  Company Number: US-Eisai-EC-2025-190727

PATIENT
  Age: 70 Year
  Sex: Male

DRUGS (4)
  1. LENVIMA [Suspect]
     Active Substance: LENVATINIB
     Indication: Renal cancer
  2. LENVIMA [Suspect]
     Active Substance: LENVATINIB
  3. LENVIMA [Suspect]
     Active Substance: LENVATINIB
  4. LENVIMA [Suspect]
     Active Substance: LENVATINIB

REACTIONS (3)
  - Palmar-plantar erythrodysaesthesia syndrome [Unknown]
  - Hypertension [Unknown]
  - Oedema [Unknown]
